FAERS Safety Report 25608556 (Version 1)
Quarter: 2025Q3

REPORT INFORMATION
  Report Type: Spontaneous
  Country: CN (occurrence: CN)
  Receive Date: 20250726
  Receipt Date: 20250726
  Transmission Date: 20251021
  Serious: Yes (Other)
  Sender: AMGEN
  Company Number: CN-AMGEN-CHNSP2025138439

PATIENT

DRUGS (9)
  1. EVOLOCUMAB [Suspect]
     Active Substance: EVOLOCUMAB
     Indication: Ischaemic stroke
     Dosage: 140 MILLIGRAM, Q2WK (DIVIDED INTO TWO INJECTIONS WITHIN 30 MINUTES) (FOR 14 DAYS)
     Route: 058
  2. ASPIRIN [Concomitant]
     Active Substance: ASPIRIN
     Indication: Ischaemic stroke
     Route: 048
  3. ASPIRIN [Concomitant]
     Active Substance: ASPIRIN
     Indication: Antiplatelet therapy
  4. CLOPIDOGREL [Concomitant]
     Active Substance: CLOPIDOGREL BISULFATE
     Indication: Ischaemic stroke
     Route: 048
  5. CLOPIDOGREL [Concomitant]
     Active Substance: CLOPIDOGREL BISULFATE
     Indication: Antiplatelet therapy
     Route: 048
  6. ATORVASTATIN [Concomitant]
     Active Substance: ATORVASTATIN
     Indication: Ischaemic stroke
     Dosage: 40 MILLIGRAM, QD (FOR 14 DAYS)
     Route: 065
  7. GINKGO [Concomitant]
     Active Substance: GINKGO
     Indication: Ischaemic stroke
     Dosage: 20 MILLIGRAM, QD (FOR 14 DAYS)
     Route: 040
  8. EDARAVONE [Concomitant]
     Active Substance: EDARAVONE
     Indication: Ischaemic stroke
     Dosage: 30 MILLIGRAM, BID (FOR 14 DAYS)
     Route: 040
  9. OXYGEN [Concomitant]
     Active Substance: OXYGEN
     Indication: Ischaemic stroke
     Route: 065

REACTIONS (6)
  - Infarction [Unknown]
  - Drug ineffective [Unknown]
  - Abdominal discomfort [Unknown]
  - Dizziness [Unknown]
  - Diarrhoea [Unknown]
  - Headache [Unknown]
